FAERS Safety Report 8962499 (Version 1)
Quarter: 2012Q4

REPORT INFORMATION
  Report Type: Spontaneous
  Country: US (occurrence: None)
  Receive Date: 20121211
  Receipt Date: 20121211
  Transmission Date: 20130627
  Serious: Yes (Life-Threatening)
  Sender: FDA-Public Use
  Company Number: None

PATIENT
  Sex: Female
  Weight: 81.65 kg

DRUGS (5)
  1. SINGULAIR [Suspect]
  2. CLARITIN [Suspect]
  3. BENADRYL [Suspect]
  4. CLARINEX [Suspect]
  5. SINGULAIR [Suspect]

REACTIONS (9)
  - Wheezing [None]
  - Dyspnoea [None]
  - Vomiting [None]
  - Discomfort [None]
  - Dyspnoea [None]
  - Parosmia [None]
  - Choking sensation [None]
  - No therapeutic response [None]
  - General physical health deterioration [None]
